FAERS Safety Report 11651492 (Version 1)
Quarter: 2015Q4

REPORT INFORMATION
  Report Type: Spontaneous
  Country: US (occurrence: US)
  Receive Date: 20151022
  Receipt Date: 20151022
  Transmission Date: 20160304
  Serious: Yes (Death)
  Sender: FDA-Public Use
  Company Number: US-ROCHE-ITM201501IM009095

PATIENT
  Sex: Male
  Weight: 83.99 kg

DRUGS (2)
  1. CIALIS [Concomitant]
     Active Substance: TADALAFIL
  2. ESBRIET [Suspect]
     Active Substance: PIRFENIDONE
     Indication: IDIOPATHIC PULMONARY FIBROSIS
     Dosage: 3 CAPS TID
     Route: 048
     Dates: start: 20141230

REACTIONS (3)
  - Death [Fatal]
  - Lung infection [Unknown]
  - Influenza [Unknown]
